FAERS Safety Report 15478759 (Version 2)
Quarter: 2019Q1

REPORT INFORMATION
  Report Type: Spontaneous
  Country: ES (occurrence: ES)
  Receive Date: 20181009
  Receipt Date: 20190227
  Transmission Date: 20190417
  Serious: Yes (Hospitalization, Other)
  Sender: FDA-Public Use
  Company Number: ES-PFIZER INC-2018402653

PATIENT
  Age: 45 Year
  Sex: Female

DRUGS (9)
  1. XELJANZ [Suspect]
     Active Substance: TOFACITINIB CITRATE
     Indication: RHEUMATOID ARTHRITIS
     Dosage: 5 MG, 2X/DAY (EVERY 12 HOURS)
     Route: 048
     Dates: start: 20171002, end: 20181002
  2. CINITAPRIDA [CINITAPRIDE] [Concomitant]
     Dosage: 1 MG, DAILY
     Dates: start: 2015
  3. METOJECT [Concomitant]
     Active Substance: METHOTREXATE SODIUM
     Dosage: 25 MG, WEEKLY
     Route: 058
     Dates: start: 20170524
  4. METOJECT [Concomitant]
     Active Substance: METHOTREXATE SODIUM
     Indication: RHEUMATOID ARTHRITIS
     Dosage: 25 MG, WEEKLY
     Route: 058
     Dates: start: 2012, end: 20161121
  5. ACFOL [Concomitant]
     Active Substance: FOLIC ACID
     Indication: RHEUMATOID ARTHRITIS
     Dosage: 5 MG, WEEKLY
     Dates: start: 20170524
  6. ETORICOXIB. [Concomitant]
     Active Substance: ETORICOXIB
     Indication: PAIN
     Dosage: 60 MG, AS NEEDED
     Dates: start: 20160316
  7. METFORMINA [METFORMIN] [Concomitant]
     Indication: HYPERGLYCAEMIA
     Dosage: 850 MG, 2X/DAY(0.5 TABLET, EVERY 12 HOURS)
     Dates: start: 20180725
  8. PARACETAMOL [Concomitant]
     Active Substance: ACETAMINOPHEN
     Indication: PAIN
     Dosage: 1 G, AS NEEDED
     Dates: start: 20161128
  9. ARAVA [Concomitant]
     Active Substance: LEFLUNOMIDE
     Dosage: 20 MG, DAILY
     Dates: start: 20161121, end: 20170522

REACTIONS (1)
  - Neuroendocrine carcinoma of the skin [Recovered/Resolved with Sequelae]

NARRATIVE: CASE EVENT DATE: 20181002
